FAERS Safety Report 19880574 (Version 11)
Quarter: 2022Q2

REPORT INFORMATION
  Report Type: Report from Study
  Country: CA (occurrence: CA)
  Receive Date: 20210924
  Receipt Date: 20220403
  Transmission Date: 20220721
  Serious: Yes (Other)
  Sender: FDA-Public Use
  Company Number: CA-BAUSCH-BL-2020-034420

PATIENT

DRUGS (17)
  1. CONTRAVE [Suspect]
     Active Substance: BUPROPION HYDROCHLORIDE\NALTREXONE HYDROCHLORIDE
     Indication: Weight control
     Dosage: 90/8 MG, 1 TABLET DAILY
     Route: 048
     Dates: start: 20201114
  2. CONTRAVE [Suspect]
     Active Substance: BUPROPION HYDROCHLORIDE\NALTREXONE HYDROCHLORIDE
     Dosage: 90/8MG, 4 TABLET DAILY (2 DOSAGE FORMS, 1 IN 12 HR)
     Route: 048
     Dates: start: 20201205, end: 202111
  3. CONTRAVE [Suspect]
     Active Substance: BUPROPION HYDROCHLORIDE\NALTREXONE HYDROCHLORIDE
     Dosage: 90/8 MG, 1 TABLET DAILY
     Route: 048
     Dates: start: 20211126, end: 20211129
  4. CONTRAVE [Suspect]
     Active Substance: BUPROPION HYDROCHLORIDE\NALTREXONE HYDROCHLORIDE
     Dosage: 90/8MG, 1 TABLET BID
     Route: 048
     Dates: start: 20211130, end: 20211203
  5. CONTRAVE [Suspect]
     Active Substance: BUPROPION HYDROCHLORIDE\NALTREXONE HYDROCHLORIDE
     Dosage: 90/8MG, 2 TABS AM, 1 TAB PM
     Route: 048
     Dates: start: 20211204, end: 20211207
  6. CONTRAVE [Suspect]
     Active Substance: BUPROPION HYDROCHLORIDE\NALTREXONE HYDROCHLORIDE
     Dosage: 90/8MG, 2 TABLET BID
     Route: 048
     Dates: start: 20211208, end: 202201
  7. METFORMIN [Concomitant]
     Active Substance: METFORMIN HYDROCHLORIDE
     Indication: Glucose tolerance impaired
     Dosage: 1000 MG (500MG, 1 IN 12HR)
     Route: 048
  8. ABILIFY [Concomitant]
     Active Substance: ARIPIPRAZOLE
     Indication: Depression
     Dosage: DAILY (2 MG)
     Route: 048
  9. DULOXETINE [Concomitant]
     Active Substance: DULOXETINE
     Indication: Anxiety
     Dosage: DAILY (60 MG)
     Route: 048
  10. BREO ELLIPTA [Concomitant]
     Active Substance: FLUTICASONE FUROATE\VILANTEROL TRIFENATATE
     Indication: Asthma
     Dosage: 1 PUFF, DAILY, (1 IN 1 D) ROUTE:RESPIRATORY (INHALATION)
     Route: 055
  11. ALBUTEROL [Concomitant]
     Active Substance: ALBUTEROL
     Indication: Asthma
     Dosage: 1 PUFF, AS NEEDED (1 IN 1 AS REQUIRED) ROUTE: RESPIRATORY (INHALATION)
     Route: 055
  12. ATROVENT [Concomitant]
     Active Substance: IPRATROPIUM BROMIDE
     Indication: Asthma
     Dosage: 1 PUFF, AS NEEDED (1 IN 1 AS REQUIRED) ROUTE: RESPIRATORY (INHALATION)
     Route: 055
  13. FINASTERIDE [Concomitant]
     Active Substance: FINASTERIDE
     Indication: Alopecia
     Dosage: (1.25 MG)
     Route: 048
     Dates: start: 202106
  14. NORETHINDRONE [Concomitant]
     Active Substance: NORETHINDRONE
     Indication: Menstrual disorder
     Dosage: (1 IN 24 HR)
     Route: 048
     Dates: start: 202106
  15. VITAMIN D NOS [Concomitant]
     Active Substance: VITAMIN D NOS
     Indication: Supplementation therapy
     Dosage: 1000 IU, 1 IN 24 HR
     Route: 048
  16. IRON [Concomitant]
     Active Substance: IRON
     Indication: Anaemia
     Dosage: IRON SUPPLEMENT (28 MG, 1 IN 24 HR)
     Route: 048
     Dates: start: 202106
  17. PROPRANOLOL [Concomitant]
     Active Substance: PROPRANOLOL HYDROCHLORIDE
     Indication: Hyperhidrosis
     Dosage: PRN (20 MG, 1 IN 12 HR)
     Route: 048

REACTIONS (18)
  - Menometrorrhagia [Recovering/Resolving]
  - Illness [Not Recovered/Not Resolved]
  - Anaemia [Not Recovered/Not Resolved]
  - Somnolence [Unknown]
  - Cough [Not Recovered/Not Resolved]
  - Sneezing [Not Recovered/Not Resolved]
  - Depression [Unknown]
  - Tremor [Not Recovered/Not Resolved]
  - Hyperhidrosis [Not Recovered/Not Resolved]
  - Stress [Unknown]
  - Fatigue [Recovered/Resolved]
  - Dry mouth [Unknown]
  - Feeling abnormal [Not Recovered/Not Resolved]
  - Headache [Not Recovered/Not Resolved]
  - Malaise [Not Recovered/Not Resolved]
  - Therapy interrupted [Unknown]
  - Drug titration error [Unknown]
  - Inability to afford medication [Unknown]

NARRATIVE: CASE EVENT DATE: 20201101
